FAERS Safety Report 18726630 (Version 1)
Quarter: 2021Q1

REPORT INFORMATION
  Report Type: Report from Study
  Country: US (occurrence: US)
  Receive Date: 20210111
  Receipt Date: 20210111
  Transmission Date: 20210419
  Serious: Yes (Hospitalization)
  Sender: FDA-Public Use
  Company Number: US-JNJFOC-20201251991

PATIENT
  Age: 41 Year
  Sex: Male

DRUGS (1)
  1. OPSUMIT [Suspect]
     Active Substance: MACITENTAN
     Indication: PULMONARY ARTERIAL HYPERTENSION
     Route: 065
     Dates: start: 2020

REACTIONS (3)
  - Hypertension [Unknown]
  - Intestinal obstruction [Unknown]
  - Heart rate increased [Unknown]

NARRATIVE: CASE EVENT DATE: 202012
